FAERS Safety Report 25917914 (Version 1)
Quarter: 2025Q4

REPORT INFORMATION
  Report Type: Report from Study
  Country: CA (occurrence: CA)
  Receive Date: 20251014
  Receipt Date: 20251014
  Transmission Date: 20260117
  Serious: Yes (Death, Other)
  Sender: ROCHE
  Company Number: CA-ROCHE-10000407375

PATIENT

DRUGS (5)
  1. MYCOPHENOLATE MOFETIL [Suspect]
     Active Substance: MYCOPHENOLATE MOFETIL
     Indication: Prophylaxis against graft versus host disease
     Route: 065
  2. METHOTREXATE [Suspect]
     Active Substance: METHOTREXATE
     Indication: Prophylaxis against graft versus host disease
     Route: 065
  3. LAPINE T-LYMPHOCYTE IMMUNE GLOBULIN [Suspect]
     Active Substance: LAPINE T-LYMPHOCYTE IMMUNE GLOBULIN
     Indication: Prophylaxis against graft versus host disease
     Dosage: 0.5 MG/KG ON DAY -3 AND 2 MG/KG/DAY ON DAYS -2 AND -1,
     Route: 065
  4. ALEMTUZUMAB [Suspect]
     Active Substance: ALEMTUZUMAB
     Indication: Prophylaxis against graft versus host disease
     Dosage: 30 MG ON D-6)
     Route: 065
  5. CYCLOPHOSPHAMIDE [Suspect]
     Active Substance: CYCLOPHOSPHAMIDE
     Indication: Prophylaxis against graft versus host disease
     Route: 065

REACTIONS (20)
  - Squamous cell carcinoma [Fatal]
  - Basal cell carcinoma [Unknown]
  - Malignant melanoma [Unknown]
  - Acute myeloid leukaemia [Fatal]
  - Plasma cell myeloma [Fatal]
  - Mantle cell lymphoma [Unknown]
  - Cutaneous T-cell lymphoma [Unknown]
  - Renal cell carcinoma [Unknown]
  - Prostate cancer [Unknown]
  - Cervix carcinoma [Unknown]
  - Endometrial cancer [Unknown]
  - Ovarian cancer [Fatal]
  - Breast cancer [Fatal]
  - Lung neoplasm malignant [Fatal]
  - Colon cancer [Fatal]
  - Oesophageal carcinoma [Fatal]
  - Lip and/or oral cavity cancer [Unknown]
  - Pancreatic carcinoma [Fatal]
  - Post transplant lymphoproliferative disorder [Fatal]
  - T-cell type acute leukaemia [Fatal]
